FAERS Safety Report 11870580 (Version 1)
Quarter: 2015Q4

REPORT INFORMATION
  Report Type: Spontaneous
  Country: US (occurrence: US)
  Receive Date: 20151228
  Receipt Date: 20151228
  Transmission Date: 20160305
  Serious: Yes (Other)
  Sender: FDA-Public Use
  Company Number: US-SANOFI-AVENTIS-2012SA068103

PATIENT
  Age: 57 Year
  Sex: Male

DRUGS (2)
  1. ASPIRIN. [Concomitant]
     Active Substance: ASPIRIN
     Route: 065
  2. PLAVIX [Suspect]
     Active Substance: CLOPIDOGREL BISULFATE
     Indication: STENT PLACEMENT
     Route: 065
     Dates: start: 2006, end: 2007

REACTIONS (4)
  - Cerebral haemorrhage [Unknown]
  - Cerebrovascular accident [Unknown]
  - Thrombotic thrombocytopenic purpura [Unknown]
  - Haemorrhage [Unknown]

NARRATIVE: CASE EVENT DATE: 200701
